FAERS Safety Report 12591775 (Version 1)
Quarter: 2016Q3

REPORT INFORMATION
  Report Type: Spontaneous
  Country: TR (occurrence: TR)
  Receive Date: 20160726
  Receipt Date: 20160726
  Transmission Date: 20161109
  Serious: Yes (Other)
  Sender: FDA-Public Use
  Company Number: TR-ACCORD-042637

PATIENT
  Age: 58 Year
  Sex: Female

DRUGS (2)
  1. VALPROATE [Concomitant]
     Active Substance: VALPROIC ACID
     Indication: BIPOLAR I DISORDER
  2. QUETIAPINE. [Suspect]
     Active Substance: QUETIAPINE
     Indication: BIPOLAR DISORDER
     Dosage: STARTED WITH THE DOSE OF 50 MG PER DAY AND THE DOSE WAS INCREASED TO 300 MG PER DAY

REACTIONS (1)
  - Rabbit syndrome [Recovered/Resolved]
